FAERS Safety Report 12669315 (Version 1)
Quarter: 2016Q3

REPORT INFORMATION
  Report Type: Spontaneous
  Country: FR (occurrence: FR)
  Receive Date: 20160819
  Receipt Date: 20160819
  Transmission Date: 20161109
  Serious: Yes (Hospitalization)
  Sender: FDA-Public Use
  Company Number: FR-PFIZER INC-2016389030

PATIENT
  Age: 88 Year
  Sex: Female

DRUGS (11)
  1. ALPRAZOLAM. [Suspect]
     Active Substance: ALPRAZOLAM
     Dosage: 0.25 MG, DAILY
     Route: 048
  2. KARDEGIC [Suspect]
     Active Substance: ASPIRIN LYSINE
     Dosage: 1 DF ORAL POWDER, DAILY
     Route: 048
  3. KAYEXALATE [Suspect]
     Active Substance: SODIUM POLYSTYRENE SULFONATE
     Dosage: UNK UNK, WEEKLY
     Route: 065
  4. MIRTAZAPINE. [Suspect]
     Active Substance: MIRTAZAPINE
     Dosage: 15 MG, DAILY
     Route: 048
  5. LAMALINE [Suspect]
     Active Substance: ACETAMINOPHEN\CAFFEINE\OPIUM
     Dosage: UNK UNK, DAILY
     Route: 065
  6. GALVUS [Suspect]
     Active Substance: VILDAGLIPTIN
     Dosage: 1 DF, DAILY
     Route: 048
  7. NICORANDIL [Suspect]
     Active Substance: NICORANDIL
     Dosage: 10 MG, DAILY
     Route: 048
  8. RAMIPRIL. [Suspect]
     Active Substance: RAMIPRIL
     Dosage: 2.5 MG, DAILY
     Route: 048
  9. SECTRAL [Suspect]
     Active Substance: ACEBUTOLOL HYDROCHLORIDE
     Dosage: 200 MG, DAILY
     Route: 048
  10. SYMBICORT [Suspect]
     Active Substance: BUDESONIDE\FORMOTEROL FUMARATE DIHYDRATE
     Dosage: 1 DF, 2X/DAY
     Route: 055
  11. FENOFIBRATE. [Suspect]
     Active Substance: FENOFIBRATE
     Dosage: 160 MG, DAILY
     Route: 048

REACTIONS (4)
  - Fall [Recovered/Resolved]
  - Urinary retention [Recovered/Resolved]
  - Faecaloma [Recovered/Resolved]
  - Multiple injuries [Recovered/Resolved]

NARRATIVE: CASE EVENT DATE: 20160621
